FAERS Safety Report 15753120 (Version 1)
Quarter: 2018Q4

REPORT INFORMATION
  Report Type: Spontaneous
  Country: CN (occurrence: CN)
  Receive Date: 20181222
  Receipt Date: 20181222
  Transmission Date: 20190205
  Serious: Yes (Other)
  Sender: FDA-Public Use
  Company Number: CN-ROCHE-2232220

PATIENT
  Age: 56 Year
  Sex: Female

DRUGS (6)
  1. FULVESTRANT. [Concomitant]
     Active Substance: FULVESTRANT
     Route: 030
  2. LETROZOLE. [Concomitant]
     Active Substance: LETROZOLE
  3. HERCEPTIN [Suspect]
     Active Substance: TRASTUZUMAB
     Indication: BREAST CANCER
     Route: 065
  4. CYCLOPHOSPHAMIDE. [Concomitant]
     Active Substance: CYCLOPHOSPHAMIDE
     Indication: BREAST CANCER
  5. EPIRUBICIN [Concomitant]
     Active Substance: EPIRUBICIN
     Indication: BREAST CANCER
  6. FULVESTRANT. [Concomitant]
     Active Substance: FULVESTRANT
     Route: 030

REACTIONS (1)
  - Bone marrow failure [Unknown]
